FAERS Safety Report 20868446 (Version 1)
Quarter: 2022Q2

REPORT INFORMATION
  Report Type: Spontaneous
  Country: US (occurrence: None)
  Receive Date: 20220524
  Receipt Date: 20220524
  Transmission Date: 20220721
  Serious: Yes (Other)
  Sender: FDA-Public Use
  Company Number: None

PATIENT
  Sex: Female

DRUGS (1)
  1. MAVYRET [Suspect]
     Active Substance: GLECAPREVIR\PIBRENTASVIR
     Indication: Hepatitis C
     Dates: start: 20220505, end: 20220519

REACTIONS (3)
  - Headache [None]
  - Blindness [None]
  - Dyspnoea [None]

NARRATIVE: CASE EVENT DATE: 20220519
